FAERS Safety Report 8347884-2 (Version None)
Quarter: 2012Q2

REPORT INFORMATION
  Report Type: 
  Country: None (occurrence: None)
  Receive Date: 20120509
  Receipt Date: 20120507
  Transmission Date: 20120825
  Serious: Yes (Hospitalization, Other)
  Sender: FDA-Public Use
  Company Number: US-BAYER-2012-044340

PATIENT
  Age: 15 Year
  Sex: Male

DRUGS (1)
  1. BETASERON [Suspect]
     Dosage: ONE OR TWO TIMES A WEEK
     Dates: start: 20100320, end: 20120420

REACTIONS (5)
  - BALANCE DISORDER [None]
  - HEMIPARESIS [None]
  - DIPLOPIA [None]
  - MULTIPLE SCLEROSIS RELAPSE [None]
  - HYPOAESTHESIA [None]
